FAERS Safety Report 5347299-5 (Version None)
Quarter: 2007Q2

REPORT INFORMATION
  Report Type: 
  Country: None (occurrence: None)
  Receive Date: 20070606
  Receipt Date: 20070524
  Transmission Date: 20071010
  Serious: Yes (Hospitalization, Other)
  Sender: FDA-Public Use
  Company Number: PHBS2007BR08653

PATIENT
  Age: 22 Year
  Sex: Male

DRUGS (1)
  1. SANDOSTATIN LAR [Suspect]
     Indication: ACROMEGALY
     Route: 065
     Dates: start: 20070411

REACTIONS (2)
  - ACROMEGALY [None]
  - PITUITARY TUMOUR REMOVAL [None]
